FAERS Safety Report 8267371-X (Version None)
Quarter: 2012Q2

REPORT INFORMATION
  Report Type: 
  Country: None (occurrence: None)
  Receive Date: 20120409
  Receipt Date: 20120403
  Transmission Date: 20120825
  Serious: Yes (Other)
  Sender: FDA-Public Use
  Company Number: PHEH2009US03544

PATIENT
  Sex: Female
  Weight: 66.678 kg

DRUGS (11)
  1. NEXIUM [Suspect]
     Dosage: UNK UKN, UNK
  2. VITAMIN D [Concomitant]
     Dosage: UNK UKN, UNK
  3. FISH OIL [Concomitant]
     Dosage: UNK UKN, UNK
  4. RECLAST [Suspect]
     Dosage: UNK UKN, UNK
     Route: 042
     Dates: start: 20080101
  5. MULTI-VITAMINS [Concomitant]
     Dosage: UNK UKN, UNK
  6. MULTI-VITAMINS [Concomitant]
     Dosage: UNK UKN, UNK
  7. LANSOPRAZOLE [Concomitant]
     Dosage: 30 MG, BID
  8. IRON SUPPLEMENTS [Concomitant]
     Dosage: UNK UKN, UNK
  9. RECLAST [Suspect]
     Dosage: UNK UKN, UNK
     Route: 042
     Dates: start: 20090328
  10. FOSAMAX [Suspect]
     Dosage: 7.5 MG, UNK
  11. CALCIUM CARBONATE [Concomitant]
     Dosage: 1500 MG, UNK

REACTIONS (13)
  - OESOPHAGEAL ULCER [None]
  - GASTRIC HAEMORRHAGE [None]
  - WEIGHT INCREASED [None]
  - PAIN [None]
  - THROAT IRRITATION [None]
  - BODY HEIGHT DECREASED [None]
  - ARTHRALGIA [None]
  - BARRETT'S OESOPHAGUS [None]
  - GASTRIC ULCER [None]
  - CHEST PAIN [None]
  - HEADACHE [None]
  - HICCUPS [None]
  - OESOPHAGEAL ULCER HAEMORRHAGE [None]
